FAERS Safety Report 8459343 (Version 4)
Quarter: 2013Q2

REPORT INFORMATION
  Report Type: Spontaneous
  Country: US (occurrence: US)
  Receive Date: 20120314
  Receipt Date: 20130523
  Transmission Date: 20140414
  Serious: No
  Sender: FDA-Public Use
  Company Number: US-ASTRAZENECA-2011SE46905

PATIENT
  Age: 50 Year
  Sex: Male

DRUGS (13)
  1. TOPROL XL [Suspect]
     Indication: HYPERTENSION
     Route: 048
  2. TOPROL XL [Suspect]
     Indication: HYPERTENSION
     Route: 048
  3. AMLODIPINE [Concomitant]
     Indication: VASCULAR COMPRESSION
  4. ASPIRIN [Concomitant]
  5. BUSPIRONE [Concomitant]
  6. DIAZEPAM [Concomitant]
  7. HYDROCODONE-ACETAMINOPHEN [Concomitant]
  8. NABUMETONE [Concomitant]
  9. NORVASC [Concomitant]
  10. THIORIDAZINE [Concomitant]
  11. TRAMADOL [Concomitant]
  12. TRAZODONE [Concomitant]
  13. LITHIUM CARBONATE [Concomitant]

REACTIONS (13)
  - Blood pressure increased [Unknown]
  - Hypertension [Unknown]
  - Back injury [Unknown]
  - Joint swelling [Unknown]
  - Chest pain [Unknown]
  - Palpitations [Unknown]
  - Dyspnoea [Unknown]
  - Weight increased [Unknown]
  - Local swelling [Unknown]
  - Dizziness [Unknown]
  - Intercepted drug dispensing error [Unknown]
  - Intentional drug misuse [Unknown]
  - Drug dose omission [Unknown]
